FAERS Safety Report 9511199 (Version 1)
Quarter: 2013Q1

REPORT INFORMATION
  Report Type: Spontaneous
  Country: US (occurrence: None)
  Receive Date: 20130305
  Receipt Date: 20130305
  Transmission Date: 20140127
  Serious: Yes (Other)
  Sender: FDA-Public Use
  Company Number: 163-21880-12120579

PATIENT
  Age: 81 Year
  Sex: Male
  Weight: 93.44 kg

DRUGS (10)
  1. REVLIMID [Suspect]
     Indication: PLASMA CELL MYELOMA
     Dosage: 5 MG, 1 IN 1 D, PO
     Route: 048
     Dates: start: 20121017
  2. LISINOPRIL (LISINOPRIL) [Concomitant]
  3. LOSARTAN POTASSIUM (LOSARTAN POTASSIUM) [Concomitant]
  4. ACYCLOVIR (ACICLOVIR) [Concomitant]
  5. FLOMAX (TAMSULOSIN HYDROCHLORIDE) [Concomitant]
  6. HYDROCHLOROTHIAZIDE (HYDROCHLOROTHIAZIDE) [Concomitant]
  7. METOPROLOL SUCCINATE (METOPROLOL SUCCINATE) [Concomitant]
  8. POTASSIUM BICARBONATE (POTASSIUM BICARBONATE) [Concomitant]
  9. PREDNISONE (PREDNISONE) [Concomitant]
  10. SIMVASTATIN (SIMVASTATIN) [Concomitant]

REACTIONS (2)
  - Hypertonic bladder [None]
  - Cough [None]
